FAERS Safety Report 6361613-3 (Version None)
Quarter: 2009Q3

REPORT INFORMATION
  Report Type: 
  Country: None (occurrence: None)
  Receive Date: 20090918
  Receipt Date: 20090914
  Transmission Date: 20100115
  Serious: Yes (Death)
  Sender: FDA-Public Use
  Company Number: PHHY2009GB39970

PATIENT
  Age: 57 Year
  Sex: Male

DRUGS (2)
  1. CLOZAPINE [Suspect]
     Dosage: UNK
     Dates: start: 20051115, end: 20090401
  2. ZAPONEX [Suspect]
     Dosage: UNK
     Route: 048
     Dates: start: 20090626

REACTIONS (1)
  - CARDIAC ANEURYSM [None]
